FAERS Safety Report 5102229-6 (Version None)
Quarter: 2006Q3

REPORT INFORMATION
  Report Type: 
  Country: None (occurrence: None)
  Receive Date: 20060912
  Receipt Date: 20060905
  Transmission Date: 20061208
  Serious: Yes (Death, Hospitalization)
  Sender: FDA-Public Use
  Company Number: US-JNJFOC-20060901646

PATIENT
  Age: 25 Year
  Sex: Male

DRUGS (2)
  1. ACETAMINOPHEN/DIPHENHYDRAMINE [Suspect]
     Indication: SUICIDE ATTEMPT
     Route: 048
  2. ANTIFREEZE [Suspect]
     Indication: SUICIDE ATTEMPT

REACTIONS (3)
  - CHEMICAL POISONING [None]
  - COMPLETED SUICIDE [None]
  - CONVULSION [None]
